FAERS Safety Report 7946103-6 (Version None)
Quarter: 2011Q4

REPORT INFORMATION
  Report Type: 
  Country: None (occurrence: None)
  Receive Date: 20111123
  Receipt Date: 20111107
  Transmission Date: 20120403
  Serious: Yes (Other)
  Sender: FDA-Public Use
  Company Number: 2011SP016266

PATIENT
  Age: 30 Year
  Sex: Female

DRUGS (1)
  1. CERAZETTE (DESOGESTREL /00754001/) [Suspect]
     Dates: end: 20100301

REACTIONS (3)
  - POLYMENORRHOEA [None]
  - INFERTILITY [None]
  - HYPOMENORRHOEA [None]
